FAERS Safety Report 6143359-X (Version None)
Quarter: 2009Q2

REPORT INFORMATION
  Report Type: 
  Country: None (occurrence: None)
  Receive Date: 20090403
  Receipt Date: 20090330
  Transmission Date: 20091009
  Serious: Yes (Hospitalization)
  Sender: FDA-Public Use
  Company Number: US-B.I. PHARMACEUTICALS,INC./RIDGEFIELD-2009-BP-03625BP

PATIENT
  Sex: Male

DRUGS (9)
  1. SPIRIVA [Suspect]
     Indication: PNEUMONIA
     Dosage: 18MCG
     Route: 055
     Dates: start: 20080601, end: 20090318
  2. SPIRIVA [Suspect]
     Indication: CHRONIC OBSTRUCTIVE PULMONARY DISEASE
  3. PREDNISONE [Concomitant]
     Indication: ADRENAL INSUFFICIENCY
     Dosage: 7.5MG
     Dates: start: 20080101
  4. ANDROGEL [Concomitant]
     Indication: BLOOD TESTOSTERONE DECREASED
  5. DIAZEPAM [Concomitant]
     Indication: BACK PAIN
     Dosage: 45MG
  6. PRILOSEC [Concomitant]
     Indication: HIATUS HERNIA
     Dates: start: 20000101
  7. FENTANYL-25 [Concomitant]
     Indication: BACK PAIN
  8. ASPIRIN [Concomitant]
     Indication: CEREBROVASCULAR ACCIDENT
     Dosage: 81MCG
     Dates: start: 20061201
  9. ROZEREM [Concomitant]
     Indication: SLEEP DISORDER

REACTIONS (6)
  - CANDIDIASIS [None]
  - HAEMOPTYSIS [None]
  - NASAL DRYNESS [None]
  - OSTEOARTHRITIS [None]
  - PNEUMONIA [None]
  - RESPIRATORY FAILURE [None]
